FAERS Safety Report 25235051 (Version 1)
Quarter: 2025Q2

REPORT INFORMATION
  Report Type: Spontaneous
  Country: PL (occurrence: PL)
  Receive Date: 20250424
  Receipt Date: 20250424
  Transmission Date: 20250717
  Serious: Yes (Other)
  Sender: ALEXION PHARMACEUTICALS
  Company Number: PL-AstraZeneca-CH-00852233AM

PATIENT

DRUGS (4)
  1. FULVESTRANT [Suspect]
     Active Substance: FULVESTRANT
     Indication: Breast cancer
     Route: 065
  2. FULVESTRANT [Suspect]
     Active Substance: FULVESTRANT
  3. ABEMACICLIB [Concomitant]
     Active Substance: ABEMACICLIB
     Route: 065
  4. GOSERELIN ACETATE [Concomitant]
     Active Substance: GOSERELIN ACETATE
     Route: 065

REACTIONS (1)
  - Metastases to meninges [Unknown]
